FAERS Safety Report 24560638 (Version 1)
Quarter: 2024Q4

REPORT INFORMATION
  Report Type: Spontaneous
  Country: CH (occurrence: CH)
  Receive Date: 20241029
  Receipt Date: 20241029
  Transmission Date: 20250114
  Serious: Yes (Other)
  Sender: ALEXION PHARMACEUTICALS
  Company Number: None

PATIENT
  Age: 72 Year

DRUGS (23)
  1. ESOMEPRAZOLE [Suspect]
     Active Substance: ESOMEPRAZOLE
     Dosage: 20 MILLIGRAM
  2. ESOMEPRAZOLE [Suspect]
     Active Substance: ESOMEPRAZOLE
     Dosage: 20 MILLIGRAM
  3. ESOMEPRAZOLE [Suspect]
     Active Substance: ESOMEPRAZOLE
     Dosage: 20 MILLIGRAM, 1/DAY
  4. IBUPROFEN [Suspect]
     Active Substance: IBUPROFEN
     Indication: Product used for unknown indication
     Dosage: 400 MILLIGRAM, EVERY 8 HRS
     Route: 065
  5. IBUPROFEN [Suspect]
     Active Substance: IBUPROFEN
     Dosage: 400 MILLIGRAM, EVERY 8 HRS
     Route: 065
  6. IBUPROFEN [Suspect]
     Active Substance: IBUPROFEN
     Dosage: 400 MILLIGRAM, EVERY 8 HRS
     Route: 065
  7. ENOXAPARIN [Suspect]
     Active Substance: ENOXAPARIN
     Dosage: 40 MILLIGRAM, 1/DAY
     Route: 065
  8. AMLODIPINE BESYLATE\HYDROCHLOROTHIAZIDE\OLMESARTAN MEDOXOMIL [Concomitant]
     Active Substance: AMLODIPINE BESYLATE\HYDROCHLOROTHIAZIDE\OLMESARTAN MEDOXOMIL
     Dosage: UNK
  9. ATENOLOL [Concomitant]
     Active Substance: ATENOLOL
     Dosage: UNK
  10. Calcimagon D3 Forte [Concomitant]
     Dosage: UNK
  11. MAGNESIUM [Concomitant]
     Active Substance: MAGNESIUM
     Dosage: UNK
  12. TIZANIDINE [Concomitant]
     Active Substance: TIZANIDINE
     Dosage: UNK
  13. PANTOPRAZOLE [Concomitant]
     Active Substance: PANTOPRAZOLE
     Dosage: UNK
  14. DAFALGAN [Concomitant]
     Active Substance: ACETAMINOPHEN
     Dosage: UNK
  15. SODIUM PICOSULFATE [Concomitant]
     Active Substance: SODIUM PICOSULFATE
     Dosage: UNK
  16. XARELTO [Concomitant]
     Active Substance: RIVAROXABAN
     Dosage: UNK
  17. MORPHINE [Concomitant]
     Active Substance: MORPHINE
     Dosage: UNK
  18. TRAMADOL [Concomitant]
     Active Substance: TRAMADOL
     Dosage: UNK
  19. GLYCOSAMINOGLYCANS [Concomitant]
     Active Substance: GLYCOSAMINOGLYCANS
     Dosage: UNK
  20. FOLIC ACID [Concomitant]
     Active Substance: FOLIC ACID
     Dosage: UNK
  21. FIG FRUIT OIL\SORBITOL [Concomitant]
     Active Substance: FIG FRUIT OIL\SORBITOL
     Dosage: UNK
  22. MOVICOL [Concomitant]
     Active Substance: POLYETHYLENE GLYCOL 3350\POTASSIUM CHLORIDE\SODIUM BICARBONATE\SODIUM CHLORIDE
     Dosage: UNK
  23. FIG [Concomitant]
     Active Substance: FIG
     Dosage: UNK

REACTIONS (3)
  - Neutropenia [Not Recovered/Not Resolved]
  - Leukopenia [Not Recovered/Not Resolved]
  - Thrombocytosis [Not Recovered/Not Resolved]
